FAERS Safety Report 5093235-9 (Version None)
Quarter: 2006Q3

REPORT INFORMATION
  Report Type: 
  Country: None (occurrence: None)
  Receive Date: 20060828
  Receipt Date: 20060817
  Transmission Date: 20061208
  Serious: Yes (Hospitalization, Other)
  Sender: FDA-Public Use
  Company Number: TPA2006A01348

PATIENT
  Age: 80 Year
  Sex: Female

DRUGS (1)
  1. ACTOS [Suspect]
     Dosage: 45 MG, PER ORAL
     Route: 048

REACTIONS (7)
  - ATRIAL FLUTTER [None]
  - BLOOD ALBUMIN DECREASED [None]
  - HEPATITIS [None]
  - PNEUMONIA [None]
  - RENAL FAILURE ACUTE [None]
  - SEPSIS [None]
  - URINARY TRACT INFECTION [None]
